FAERS Safety Report 9006275 (Version 1)
Quarter: 2013Q1

REPORT INFORMATION
  Report Type: Spontaneous
  Country: US (occurrence: US)
  Receive Date: 20130110
  Receipt Date: 20130110
  Transmission Date: 20140127
  Serious: Yes (Other)
  Sender: FDA-Public Use
  Company Number: US-009507513-0909USA03219

PATIENT
  Age: 1 Year
  Sex: Male
  Weight: 11.79 kg

DRUGS (1)
  1. SINGULAIR [Suspect]
     Indication: WHEEZING
     Dosage: 1 DF, HS
     Route: 048
     Dates: start: 20090111

REACTIONS (3)
  - Hallucination [Recovered/Resolved]
  - Insomnia [Unknown]
  - Mood altered [Unknown]
